FAERS Safety Report 24937275 (Version 2)
Quarter: 2025Q2

REPORT INFORMATION
  Report Type: Report from Study
  Country: US (occurrence: US)
  Receive Date: 20250206
  Receipt Date: 20250519
  Transmission Date: 20250717
  Serious: No
  Sender: STALLERGENES
  Company Number: US-STALCOR-2025-AER-00138

PATIENT
  Age: 6 Year
  Sex: Male

DRUGS (2)
  1. PALFORZIA [Suspect]
     Active Substance: PEANUT
     Indication: Food allergy
     Dosage: LVL 11: 300MG TITRATED-REACTIVE DOSE
     Route: 048
     Dates: start: 20241219
  2. PALFORZIA [Suspect]
     Active Substance: PEANUT
     Route: 048
     Dates: start: 20240508

REACTIONS (4)
  - Abdominal pain [Recovered/Resolved]
  - Cough [Recovered/Resolved]
  - Sneezing [Recovered/Resolved]
  - Rhinorrhoea [Recovered/Resolved]

NARRATIVE: CASE EVENT DATE: 20241219
